FAERS Safety Report 21817381 (Version 3)
Quarter: 2023Q1

REPORT INFORMATION
  Report Type: Report from Study
  Country: US (occurrence: US)
  Receive Date: 20230104
  Receipt Date: 20230119
  Transmission Date: 20230417
  Serious: Yes (Life-Threatening, Hospitalization)
  Sender: FDA-Public Use
  Company Number: US-JNJFOC-20221102476

PATIENT
  Age: 69 Year
  Sex: Male
  Weight: 57.6 kg

DRUGS (11)
  1. MACITENTAN [Suspect]
     Active Substance: MACITENTAN
     Indication: Pulmonary arterial hypertension
     Route: 048
     Dates: start: 20220920, end: 20221003
  2. ADCIRCA [Concomitant]
     Active Substance: TADALAFIL
     Indication: Pulmonary arterial hypertension
     Route: 048
     Dates: start: 20150226
  3. TORSEMIDE [Concomitant]
     Active Substance: TORSEMIDE
     Indication: Cardiac failure congestive
     Route: 048
     Dates: start: 20180626
  4. ORENITRAM [Concomitant]
     Active Substance: TREPROSTINIL
     Indication: Pulmonary arterial hypertension
     Route: 048
     Dates: start: 20220127
  5. ORENITRAM [Concomitant]
     Active Substance: TREPROSTINIL
     Indication: Cardiac failure congestive
     Route: 048
     Dates: start: 20220127
  6. ORENITRAM [Concomitant]
     Active Substance: TREPROSTINIL
     Route: 048
     Dates: start: 20220127
  7. ORENITRAM [Concomitant]
     Active Substance: TREPROSTINIL
     Route: 050
     Dates: start: 20220127
  8. ORENITRAM [Concomitant]
     Active Substance: TREPROSTINIL
     Route: 050
     Dates: start: 20220309
  9. ORENITRAM [Concomitant]
     Active Substance: TREPROSTINIL
     Route: 048
     Dates: start: 20220304
  10. ROSUVASTATIN [Concomitant]
     Active Substance: ROSUVASTATIN
     Indication: Cardiac failure congestive
     Route: 048
     Dates: start: 20220324
  11. OXYGEN [Concomitant]
     Active Substance: OXYGEN

REACTIONS (2)
  - Hypoxia [Recovered/Resolved]
  - Respiratory failure [Recovered/Resolved]

NARRATIVE: CASE EVENT DATE: 20220929
